FAERS Safety Report 10494808 (Version 1)
Quarter: 2014Q4

REPORT INFORMATION
  Report Type: Spontaneous
  Country: US (occurrence: US)
  Receive Date: 20141003
  Receipt Date: 20141003
  Transmission Date: 20150528
  Serious: No
  Sender: FDA-Public Use
  Company Number: US-BAYER-2014-146665

PATIENT
  Sex: Female
  Weight: 79.37 kg

DRUGS (2)
  1. BLACKMORES CO-Q10 [Concomitant]
  2. ALEVE [Suspect]
     Active Substance: NAPROXEN SODIUM
     Indication: ARTHRITIS
     Dosage: 2 DF, PRN
     Route: 048

REACTIONS (1)
  - Drug ineffective [None]
